FAERS Safety Report 10104559 (Version 1)
Quarter: 2014Q2

REPORT INFORMATION
  Report Type: Spontaneous
  Country: US (occurrence: US)
  Receive Date: 20140424
  Receipt Date: 20140424
  Transmission Date: 20141212
  Serious: Yes (Other)
  Sender: FDA-Public Use
  Company Number: US-ABBVIE-14P-163-1226299-00

PATIENT
  Age: 36 Year
  Sex: Female
  Weight: 76.27 kg

DRUGS (1)
  1. LUPRON DEPOT [Suspect]
     Indication: ENDOMETRIOSIS
     Dates: start: 201110, end: 201201

REACTIONS (6)
  - Endometriosis [Recovered/Resolved]
  - Fallopian tube disorder [Recovered/Resolved]
  - Ovarian cyst [Recovered/Resolved]
  - Hot flush [Recovered/Resolved]
  - Endometriosis [Recovered/Resolved]
  - Endometriosis [Not Recovered/Not Resolved]
